FAERS Safety Report 10192805 (Version 2)
Quarter: 2014Q2

REPORT INFORMATION
  Report Type: Spontaneous
  Country: BR (occurrence: BR)
  Receive Date: 20140523
  Receipt Date: 20140606
  Transmission Date: 20141212
  Serious: Yes (Other)
  Sender: FDA-Public Use
  Company Number: BR-SA-2014SA064830

PATIENT
  Age: 25 Year
  Sex: Female
  Weight: 59 kg

DRUGS (3)
  1. ALLEGRA D [Suspect]
     Indication: RHINITIS ALLERGIC
     Route: 048
     Dates: start: 20140513, end: 20140515
  2. FLUIMUCIL [Concomitant]
     Indication: PRODUCTIVE COUGH
     Dosage: 1 TIME A DAY, DILUTED WITH WATER
     Route: 065
     Dates: start: 20140513
  3. LEVOTHYROXINE SODIUM [Concomitant]
     Indication: THYROID DISORDER
     Route: 048

REACTIONS (8)
  - Aphagia [Recovering/Resolving]
  - Abdominal pain upper [Recovering/Resolving]
  - Malaise [Recovering/Resolving]
  - Abdominal distension [Recovering/Resolving]
  - Diarrhoea [Recovering/Resolving]
  - Blood pressure decreased [Recovered/Resolved]
  - Syncope [Recovering/Resolving]
  - Insomnia [Recovering/Resolving]
